FAERS Safety Report 20414645 (Version 1)
Quarter: 2022Q1

REPORT INFORMATION
  Report Type: Report from Study
  Country: CA (occurrence: CA)
  Receive Date: 20220202
  Receipt Date: 20220202
  Transmission Date: 20220423
  Serious: Yes (Other)
  Sender: FDA-Public Use
  Company Number: CA-JNJFOC-20210760533

PATIENT
  Age: 52 Year
  Sex: Female
  Weight: 78 kg

DRUGS (1)
  1. REMICADE [Suspect]
     Active Substance: INFLIXIMAB
     Indication: Crohn^s disease
     Route: 042
     Dates: start: 20100318, end: 20211230

REACTIONS (7)
  - Wound infection [Recovering/Resolving]
  - Ulcer [Unknown]
  - Tongue operation [Unknown]
  - Wound [Not Recovered/Not Resolved]
  - Bloody discharge [Not Recovered/Not Resolved]
  - Mouth ulceration [Unknown]
  - Candida infection [Unknown]

NARRATIVE: CASE EVENT DATE: 20211006
